FAERS Safety Report 5031199-4 (Version None)
Quarter: 2006Q2

REPORT INFORMATION
  Report Type: 
  Country: None (occurrence: None)
  Receive Date: 20060621
  Receipt Date: 20060307
  Transmission Date: 20061013
  Serious: No
  Sender: FDA-Public Use
  Company Number: US-GLAXOSMITHKLINE-A0596529A

PATIENT
  Age: 44 Year
  Sex: Female
  Weight: 123.6 kg

DRUGS (2)
  1. AVANDARYL [Suspect]
     Dosage: 1TAB PER DAY
     Route: 048
     Dates: start: 20060306, end: 20060309
  2. POTASSIUM [Concomitant]

REACTIONS (1)
  - GASTROINTESTINAL PAIN [None]
